FAERS Safety Report 9641870 (Version 2)
Quarter: 2013Q4

REPORT INFORMATION
  Report Type: Spontaneous
  Country: CA (occurrence: CA)
  Receive Date: 20131023
  Receipt Date: 20131217
  Transmission Date: 20140711
  Serious: Yes (Life-Threatening, Hospitalization, Disabling, Other)
  Sender: FDA-Public Use
  Company Number: CA-ABBVIE-13P-028-1160362-00

PATIENT
  Age: 2 Year
  Sex: Female
  Weight: 13.7 kg

DRUGS (1)
  1. BIAXIN PEDIATRIC [Suspect]
     Indication: INFECTIOUS MONONUCLEOSIS
     Dosage: 125MG/5ML
     Route: 048
     Dates: start: 20130514, end: 20130523

REACTIONS (2)
  - Anaemia [Recovered/Resolved]
  - Convulsion [Recovered/Resolved]
